FAERS Safety Report 8783942 (Version 1)
Quarter: 2012Q4

REPORT INFORMATION
  Report Type: 
  Country: US (occurrence: US)
  Receive Date: 20120913
  Receipt Date: 20120913
  Transmission Date: 20130627
  Serious: No
  Sender: FDA-Public Use
  Company Number: US-VERTEX PHARMACEUTICAL INC.-AE-2012-009341

PATIENT
  Age: 55 Year
  Sex: Male

DRUGS (7)
  1. INCIVEK [Suspect]
     Indication: HEPATITIS C
     Route: 048
     Dates: start: 20120420
  2. INCIVEK [Suspect]
     Route: 048
     Dates: start: 20120420, end: 20120713
  3. RIBAVIRIN [Concomitant]
     Indication: HEPATITIS C
     Dates: start: 20120420
  4. RIBAVIRIN [Concomitant]
  5. RIBAVIRIN [Concomitant]
  6. RIBAVIRIN [Concomitant]
     Dates: start: 201207
  7. PEGASYS [Concomitant]
     Indication: HEPATITIS C
     Dates: start: 20120420

REACTIONS (5)
  - Gallbladder pain [Not Recovered/Not Resolved]
  - Abdominal pain [Not Recovered/Not Resolved]
  - Anaemia [Not Recovered/Not Resolved]
  - Abdominal pain [Not Recovered/Not Resolved]
  - Fatigue [Not Recovered/Not Resolved]
